FAERS Safety Report 15277040 (Version 1)
Quarter: 2018Q3

REPORT INFORMATION
  Report Type: Spontaneous
  Country: US (occurrence: US)
  Receive Date: 20180729
  Receipt Date: 20180729
  Transmission Date: 20181010
  Serious: Yes (Death, Hospitalization, Disabling)
  Sender: FDA-Public Use
  Company Number: None

PATIENT
  Age: 52 Year
  Sex: Female

DRUGS (4)
  1. CLONAZEPAM. [Suspect]
     Active Substance: CLONAZEPAM
     Indication: INSOMNIA
     Dosage: ?          QUANTITY:1 TABLET(S);?
     Route: 048
     Dates: start: 20140918, end: 20150202
  2. CLONAZEPAM. [Suspect]
     Active Substance: CLONAZEPAM
     Indication: TRICHOTILLOMANIA
     Dosage: ?          QUANTITY:1 TABLET(S);?
     Route: 048
     Dates: start: 20140918, end: 20150202
  3. CLONAZEPAM. [Suspect]
     Active Substance: CLONAZEPAM
     Indication: ANXIETY
     Dosage: ?          QUANTITY:1 TABLET(S);?
     Route: 048
     Dates: start: 20140918, end: 20150202
  4. DIAZEPAM. [Suspect]
     Active Substance: DIAZEPAM
     Indication: PRODUCT USED FOR UNKNOWN INDICATION
     Dosage: ?          QUANTITY:3 TABLET(S);?
     Route: 048
     Dates: start: 20150203, end: 20150920

REACTIONS (22)
  - Gastrointestinal disorder [None]
  - Crying [None]
  - Depression [None]
  - Delusion [None]
  - Insomnia [None]
  - Panic attack [None]
  - Hyperacusis [None]
  - Pollakiuria [None]
  - Palpitations [None]
  - Suicidal ideation [None]
  - Cognitive disorder [None]
  - Tachycardia [None]
  - Agoraphobia [None]
  - Self-injurious ideation [None]
  - Mobility decreased [None]
  - Tinnitus [None]
  - Hyperhidrosis [None]
  - Paraesthesia [None]
  - Completed suicide [None]
  - Tremor [None]
  - Akathisia [None]
  - Hypoaesthesia [None]

NARRATIVE: CASE EVENT DATE: 20150218
